FAERS Safety Report 6809908-0 (Version None)
Quarter: 2010Q2

REPORT INFORMATION
  Report Type: 
  Country: None (occurrence: None)
  Receive Date: 20100630
  Receipt Date: 20100628
  Transmission Date: 20101027
  Serious: Yes (Death)
  Sender: FDA-Public Use
  Company Number: US-GILEAD-2010-0026297

PATIENT
  Sex: Male

DRUGS (14)
  1. LETAIRIS [Suspect]
     Indication: PULMONARY ARTERIAL HYPERTENSION
     Route: 048
     Dates: start: 20070813
  2. REVATIO [Concomitant]
  3. COUMADIN [Concomitant]
  4. NORVASC [Concomitant]
  5. AMIODARONE [Concomitant]
  6. LABETALOL HCL [Concomitant]
  7. PLAVIX [Concomitant]
  8. SPIRIVA [Concomitant]
  9. PROAIR HFA [Concomitant]
  10. ADVAIR DISKUS 100/50 [Concomitant]
  11. FOSRENOL [Concomitant]
  12. SENSIPAR [Concomitant]
  13. SPS [Concomitant]
  14. RENAL [Concomitant]

REACTIONS (1)
  - DEATH [None]
